FAERS Safety Report 8471941-3 (Version None)
Quarter: 2012Q2

REPORT INFORMATION
  Report Type: 
  Country: None (occurrence: None)
  Receive Date: 20120627
  Receipt Date: 20120613
  Transmission Date: 20120825
  Serious: No
  Sender: FDA-Public Use
  Company Number: US-JNJFOC-20120608260

PATIENT

DRUGS (2)
  1. INVEGA SUSTENNA [Suspect]
     Indication: SCHIZOPHRENIA
     Route: 065
  2. INVEGA SUSTENNA [Suspect]
     Route: 065

REACTIONS (2)
  - DIZZINESS [None]
  - NAUSEA [None]
